FAERS Safety Report 9602128 (Version 1)
Quarter: 2013Q4

REPORT INFORMATION
  Report Type: Spontaneous
  Country: US (occurrence: US)
  Receive Date: 20131007
  Receipt Date: 20131007
  Transmission Date: 20140711
  Serious: Yes (Hospitalization)
  Sender: FDA-Public Use
  Company Number: US-SA-2013SA096176

PATIENT
  Age: 66 Year
  Sex: Male

DRUGS (2)
  1. LANTUS SOLOSTAR [Suspect]
     Dosage: START DATE : OVER 10 YEARS DOSE:35 UNIT(S)
     Route: 065
  2. SOLOSTAR [Concomitant]
     Dosage: START DATE : OVER 10 YEARS

REACTIONS (2)
  - Myocardial infarction [Unknown]
  - Incorrect product storage [Unknown]
